FAERS Safety Report 21355609 (Version 3)
Quarter: 2022Q4

REPORT INFORMATION
  Report Type: Report from Study
  Country: US (occurrence: US)
  Receive Date: 20220920
  Receipt Date: 20221001
  Transmission Date: 20230112
  Serious: Yes (Other)
  Sender: FDA-Public Use
  Company Number: US-NOVARTISTESTPH-NVSC2022US212532

PATIENT
  Age: 67 Year
  Sex: Female
  Weight: 60.771 kg

DRUGS (1)
  1. ENTRESTO [Suspect]
     Active Substance: SACUBITRIL\VALSARTAN
     Indication: Cardiac failure congestive
     Dosage: 1 DOSAGE FORM, BID (49/51 MG)
     Route: 048
     Dates: start: 20220904

REACTIONS (7)
  - Blood urine [Unknown]
  - Decreased appetite [Unknown]
  - Dry throat [Unknown]
  - Asthenia [Unknown]
  - Fatigue [Unknown]
  - Cough [Recovered/Resolved]
  - Hypotension [Unknown]

NARRATIVE: CASE EVENT DATE: 20220919
